FAERS Safety Report 4810130-8 (Version None)
Quarter: 2005Q4

REPORT INFORMATION
  Report Type: 
  Country: None (occurrence: None)
  Receive Date: 20051024
  Receipt Date: 20051024
  Transmission Date: 20060501
  Serious: Yes (Hospitalization, Other)
  Sender: FDA-Public Use
  Company Number: None

PATIENT
  Sex: Female
  Weight: 118.8 kg

DRUGS (6)
  1. FLUOROURACIL [Suspect]
     Indication: BREAST CANCER
     Dosage: SEE IMAGE
     Route: 042
     Dates: end: 20050811
  2. FLUOROURACIL [Suspect]
     Indication: BREAST CANCER
     Dosage: SEE IMAGE
     Route: 042
     Dates: start: 20050817
  3. EPIRUBICIN [Suspect]
     Dosage: SEE IMAGE
     Route: 042
     Dates: end: 20050811
  4. CYCLOPHOSPHAMIDE [Suspect]
     Dosage: SEE IMAGE
     Route: 042
     Dates: end: 20050811
  5. CELECOXIB [Suspect]
     Dosage: SEE IMAGE
     Route: 048
     Dates: start: 20050817
  6. PLACEBO [Suspect]
     Dosage: SEE IMAGE
     Route: 048
     Dates: start: 20050817

REACTIONS (6)
  - CHEST PAIN [None]
  - DUODENITIS [None]
  - DYSPNOEA [None]
  - GASTRITIS [None]
  - OCCULT BLOOD POSITIVE [None]
  - PULMONARY EMBOLISM [None]
